FAERS Safety Report 4650948-8 (Version None)
Quarter: 2005Q2

REPORT INFORMATION
  Report Type: 
  Country: None (occurrence: None)
  Receive Date: 20050503
  Receipt Date: 20050427
  Transmission Date: 20051028
  Serious: Yes (Death)
  Sender: FDA-Public Use
  Company Number: US-GLAXOSMITHKLINE-A0555958A

PATIENT
  Age: 65 Year
  Sex: Male
  Weight: 86 kg

DRUGS (4)
  1. ECOTRIN REGULAR STRENGTH TABLETS [Suspect]
     Indication: PAIN
     Route: 048
  2. LUVOX [Suspect]
     Route: 048
  3. VASOTEC [Concomitant]
  4. ZOLOFT [Concomitant]

REACTIONS (2)
  - COMPLETED SUICIDE [None]
  - GUN SHOT WOUND [None]
